FAERS Safety Report 6274264-6 (Version None)
Quarter: 2009Q3

REPORT INFORMATION
  Report Type: 
  Country: None (occurrence: None)
  Receive Date: 20090720
  Receipt Date: 20090710
  Transmission Date: 20100115
  Serious: Yes (Hospitalization, Other)
  Sender: FDA-Public Use
  Company Number: DE-PFIZER INC-2009229224

PATIENT
  Age: 48 Year

DRUGS (1)
  1. CELEBREX [Suspect]
     Indication: BACK PAIN
     Dosage: UNK
     Route: 048
     Dates: start: 20090615, end: 20090615

REACTIONS (5)
  - BLOOD PRESSURE SYSTOLIC DECREASED [None]
  - CHILLS [None]
  - HYPERSENSITIVITY [None]
  - PERIPHERAL VASCULAR DISORDER [None]
  - URTICARIA [None]
